FAERS Safety Report 10700490 (Version 1)
Quarter: 2015Q1

REPORT INFORMATION
  Report Type: Spontaneous
  Country: IT (occurrence: None)
  Receive Date: 20150107
  Receipt Date: 20150107
  Transmission Date: 20150721
  Serious: Yes (Other)
  Sender: FDA-Public Use
  Company Number: SP08785

PATIENT
  Age: 50 Year

DRUGS (2)
  1. ENAPREN [Suspect]
     Active Substance: ENALAPRIL MALEATE
     Indication: HYPERTENSION
     Route: 048
     Dates: start: 20140223, end: 20140225
  2. XIFAXAN [Suspect]
     Active Substance: RIFAXIMIN
     Indication: GASTROENTERITIS
     Route: 048
     Dates: start: 20140225, end: 20140225

REACTIONS (3)
  - Dyspnoea [None]
  - Pharyngeal oedema [None]
  - Drug hypersensitivity [None]

NARRATIVE: CASE EVENT DATE: 20140225
